FAERS Safety Report 7389004-7 (Version None)
Quarter: 2011Q1

REPORT INFORMATION
  Report Type: 
  Country: None (occurrence: None)
  Receive Date: 20110329
  Receipt Date: 20110329
  Transmission Date: 20110831
  Serious: Yes (Other)
  Sender: FDA-Public Use
  Company Number: None

PATIENT
  Age: 1 Month
  Sex: Male
  Weight: 3.6288 kg

DRUGS (1)
  1. ZOLOFT [Suspect]

REACTIONS (16)
  - ATTENTION DEFICIT/HYPERACTIVITY DISORDER [None]
  - DYSPHAGIA [None]
  - HYPERTENSION [None]
  - CONSTIPATION [None]
  - AFFECTIVE DISORDER [None]
  - PNEUMONIA ASPIRATION [None]
  - ENCEPHALOPATHY [None]
  - PITUITARY HYPOPLASIA [None]
  - MATERNAL DRUGS AFFECTING FOETUS [None]
  - DEVELOPMENTAL DELAY [None]
  - INFECTION [None]
  - BRONCHIAL HYPERREACTIVITY [None]
  - BIPOLAR DISORDER [None]
  - GASTROOESOPHAGEAL REFLUX DISEASE [None]
  - IMMUNE SYSTEM DISORDER [None]
  - HYPOTONIA [None]
